FAERS Safety Report 8578096-5 (Version None)
Quarter: 2012Q3

REPORT INFORMATION
  Report Type: 
  Country: None (occurrence: None)
  Receive Date: 20120808
  Receipt Date: 20120803
  Transmission Date: 20120928
  Serious: Yes (Death)
  Sender: FDA-Public Use
  Company Number: PHHY2012US067772

PATIENT
  Age: 87 Year
  Sex: Male

DRUGS (9)
  1. FUROSEMIDE [Concomitant]
     Dosage: 20 MG, DAILY
     Route: 048
  2. ATENOLOL [Concomitant]
     Dosage: 100 MG, DAILY
     Route: 048
  3. SERTRALINE HYDROCHLORIDE [Interacting]
     Dosage: 50 MG, DAILY
     Route: 048
  4. ALBUTEROL SULFATE AND IPRATROPIUM BROMIDE [Concomitant]
     Dosage: 1 PUFF QID
  5. METRONIDAZOLE [Concomitant]
  6. GABAPENTIN [Concomitant]
     Dosage: 600 MG, TID
     Route: 048
  7. OXCARBAZEPINE [Suspect]
     Indication: DIABETIC NEUROPATHY
     Dosage: 150 MG, DAILY
  8. GLIPIZIDE [Concomitant]
     Dosage: 5 MG, DAILY
     Route: 048
  9. ASPIRIN [Concomitant]
     Dosage: 81 MG, DAILY
     Route: 048

REACTIONS (9)
  - SEPTIC SHOCK [None]
  - MUSCULOSKELETAL STIFFNESS [None]
  - DRUG INTERACTION [None]
  - CELLULITIS [None]
  - SEROTONIN SYNDROME [None]
  - LEUKOCYTOSIS [None]
  - VOMITING [None]
  - LETHARGY [None]
  - TREMOR [None]
